FAERS Safety Report 25319024 (Version 1)
Quarter: 2025Q2

REPORT INFORMATION
  Report Type: Spontaneous
  Country: ES (occurrence: ES)
  Receive Date: 20250515
  Receipt Date: 20250515
  Transmission Date: 20250717
  Serious: Yes (Life-Threatening, Hospitalization)
  Sender: BAYER HEALTHCARE PHARMACEUTICALS INC.
  Company Number: None

PATIENT
  Age: 82 Year
  Sex: Male

DRUGS (1)
  1. FINERENONE [Suspect]
     Active Substance: FINERENONE
     Indication: Chronic kidney disease
     Dates: start: 20250331

REACTIONS (1)
  - Hyperkalaemia [Recovered/Resolved]

NARRATIVE: CASE EVENT DATE: 20250415
